FAERS Safety Report 15190943 (Version 2)
Quarter: 2018Q3

REPORT INFORMATION
  Report Type: Spontaneous
  Country: US (occurrence: US)
  Receive Date: 20180724
  Receipt Date: 20180817
  Transmission Date: 20181010
  Serious: Yes (Hospitalization, Other)
  Sender: FDA-Public Use
  Company Number: US-SAKK-2018SA168068AA

PATIENT
  Age: 54 Year
  Sex: Female

DRUGS (1)
  1. FABRAZYME [Suspect]
     Active Substance: AGALSIDASE BETA
     Dosage: 115 MG, QOW
     Route: 041
     Dates: start: 20160929

REACTIONS (4)
  - Melaena [Unknown]
  - Oesophageal pain [Unknown]
  - Loss of consciousness [Unknown]
  - Pain [Unknown]
